FAERS Safety Report 11171380 (Version 2)
Quarter: 2015Q4

REPORT INFORMATION
  Report Type: Spontaneous
  Country: US (occurrence: US)
  Receive Date: 20150608
  Receipt Date: 20151117
  Transmission Date: 20160304
  Serious: Yes (Death, Other)
  Sender: FDA-Public Use
  Company Number: US-AMGEN-USASP2015054492

PATIENT
  Age: 86 Year
  Sex: Female
  Weight: 61.45 kg

DRUGS (15)
  1. CENTRUM SILVER                     /08550101/ [Concomitant]
     Dosage: UNK UNK, QD
     Route: 048
  2. FISH OIL [Concomitant]
     Active Substance: FISH OIL
     Dosage: 1000 MG, QD
     Route: 048
  3. EXFORGE [Concomitant]
     Active Substance: AMLODIPINE BESYLATE\VALSARTAN
     Dosage: 5-320 MG, QHS
     Route: 048
  4. TYLENOL [Concomitant]
     Active Substance: ACETAMINOPHEN
     Dosage: 325 MG, QHS
     Route: 048
  5. FENOFIBRATE. [Concomitant]
     Active Substance: FENOFIBRATE
  6. ANUSOL HC                          /00028604/ [Concomitant]
     Dosage: 25 MG, UNK
     Route: 054
  7. PROLIA [Suspect]
     Active Substance: DENOSUMAB
     Indication: OSTEOPOROSIS POSTMENOPAUSAL
     Dosage: UNK
     Route: 065
     Dates: start: 20121206
  8. IBUPROFEN. [Concomitant]
     Active Substance: IBUPROFEN
     Dosage: 200 MG, QD
     Route: 048
  9. CINNAMON                           /01647501/ [Concomitant]
     Active Substance: CINNAMON
     Dosage: 500 MG, BID
     Route: 048
  10. CALCIUM WITH VITAMIN D             /00944201/ [Concomitant]
     Active Substance: CALCIUM\VITAMIN D
     Indication: BONE DISORDER
     Dosage: 1 DF; 600-400 MG, BID
     Route: 048
  11. VITAMIN B12 [Concomitant]
     Active Substance: CYANOCOBALAMIN
     Dosage: 500 MUG, QD
     Route: 048
  12. PROLIA [Suspect]
     Active Substance: DENOSUMAB
     Indication: BONE DISORDER
  13. FLUOCINONIDE. [Concomitant]
     Active Substance: FLUOCINONIDE
     Dosage: 0.05 %, BID
     Route: 061
  14. HYDROCHLOROTHIAZIDE. [Concomitant]
     Active Substance: HYDROCHLOROTHIAZIDE
     Dosage: 25 MG, QD
     Route: 048
  15. MOTRIN [Concomitant]
     Active Substance: IBUPROFEN
     Indication: MUSCULOSKELETAL PAIN
     Dosage: UNK UNK, QD

REACTIONS (16)
  - Lipomatosis [Recovering/Resolving]
  - Onycholysis [Unknown]
  - Colon adenoma [Unknown]
  - Microalbuminuria [Unknown]
  - Large intestine polyp [Unknown]
  - Hyperuricaemia [Unknown]
  - Fatigue [Recovered/Resolved]
  - Carotid bruit [Unknown]
  - Death [Fatal]
  - Melanocytic naevus [Unknown]
  - Impaired fasting glucose [Unknown]
  - Rash maculo-papular [Unknown]
  - Onychomycosis [Unknown]
  - Rectal ulcer [Unknown]
  - Haemorrhoids [Unknown]
  - Seborrhoeic dermatitis [Unknown]

NARRATIVE: CASE EVENT DATE: 201309
